FAERS Safety Report 23951455 (Version 2)
Quarter: 2024Q2

REPORT INFORMATION
  Report Type: Spontaneous
  Country: DE (occurrence: DE)
  Receive Date: 20240607
  Receipt Date: 20240611
  Transmission Date: 20240716
  Serious: Yes (Hospitalization, Other)
  Sender: FDA-Public Use
  Company Number: DE-002147023-NVSC2023DE178482

PATIENT
  Sex: Male

DRUGS (5)
  1. COSENTYX [Suspect]
     Active Substance: SECUKINUMAB
     Indication: Axial spondyloarthritis
     Dosage: 150 MG, QMO (EVERY 4 WEEKS) ROUTE OF ADMIN (FREE TEXT): INJECTION NOT OTHERWISE SPECIFIED
     Route: 065
     Dates: start: 20221221, end: 20230725
  2. DICLOFENAC [Suspect]
     Active Substance: DICLOFENAC
     Indication: Axial spondyloarthritis
     Dosage: 150 MG, QD (7 DAYS/WEEK)
     Route: 065
     Dates: start: 20180401, end: 20221231
  3. DICLOFENAC [Suspect]
     Active Substance: DICLOFENAC
     Dosage: 150 MG, QD (7 DAYS/WEEK)
     Route: 065
     Dates: start: 20230302
  4. ALLOPURINOL [Concomitant]
     Active Substance: ALLOPURINOL
     Indication: Product used for unknown indication
     Dosage: 150 MG
     Route: 065
     Dates: start: 20190913
  5. ETANERCEPT [Concomitant]
     Active Substance: ETANERCEPT
     Indication: Product used for unknown indication
     Dosage: 25 MG
     Route: 065
     Dates: start: 20230808

REACTIONS (5)
  - Pyelonephritis [Unknown]
  - Coronary artery disease [Unknown]
  - Transient ischaemic attack [Recovered/Resolved]
  - Cystitis [Unknown]
  - Fatigue [Unknown]

NARRATIVE: CASE EVENT DATE: 20230118
